FAERS Safety Report 4455068-3 (Version None)
Quarter: 2004Q3

REPORT INFORMATION
  Report Type: 
  Country: None (occurrence: None)
  Receive Date: 20040825
  Receipt Date: 20040601
  Transmission Date: 20050211
  Serious: No
  Sender: FDA-Public Use
  Company Number: 206905

PATIENT
  Age: 53 Year
  Sex: Male

DRUGS (1)
  1. RAPTIVA [Suspect]
     Indication: PSORIASIS
     Dosage: 0.9 ML, SUBCUTANEOUS
     Route: 058
     Dates: start: 20040526

REACTIONS (2)
  - INFECTION [None]
  - LYMPHADENOPATHY [None]
